FAERS Safety Report 5729364-3 (Version None)
Quarter: 2008Q2

REPORT INFORMATION
  Report Type: 
  Country: None (occurrence: None)
  Receive Date: 20080430
  Receipt Date: 20080212
  Transmission Date: 20081010
  Serious: No
  Sender: FDA-Public Use
  Company Number: 2008PV034224

PATIENT
  Sex: Female

DRUGS (6)
  1. SYMLIN [Suspect]
     Indication: TYPE 2 DIABETES MELLITUS
     Dosage: 120 MCG;TID;SC
     Route: 058
     Dates: start: 20060801
  2. METFORMIN [Concomitant]
  3. HUMULIN R [Concomitant]
  4. NOVOLOG [Concomitant]
  5. LANTUS [Concomitant]
  6. COUMADIN [Concomitant]

REACTIONS (1)
  - INJECTION SITE BRUISING [None]
